FAERS Safety Report 10199953 (Version 1)
Quarter: 2014Q2

REPORT INFORMATION
  Report Type: Spontaneous
  Country: US (occurrence: US)
  Receive Date: 20140527
  Receipt Date: 20140527
  Transmission Date: 20141212
  Serious: No
  Sender: FDA-Public Use
  Company Number: US-NOVEN-14US008719

PATIENT
  Age: 9 Year
  Sex: Male

DRUGS (3)
  1. DAYTRANA [Suspect]
     Indication: IMPULSIVE BEHAVIOUR
     Dosage: 10 MG, UNK
     Route: 062
     Dates: start: 20140118
  2. DAYTRANA [Suspect]
     Indication: PSYCHOMOTOR HYPERACTIVITY
  3. DAYTRANA [Suspect]
     Indication: BRAIN INJURY

REACTIONS (6)
  - Disturbance in social behaviour [Not Recovered/Not Resolved]
  - Psychomotor hyperactivity [Not Recovered/Not Resolved]
  - Wrong technique in drug usage process [Not Recovered/Not Resolved]
  - Drug prescribing error [Not Recovered/Not Resolved]
  - Off label use [Not Recovered/Not Resolved]
  - Product quality issue [Not Recovered/Not Resolved]
